FAERS Safety Report 6779018-X (Version None)
Quarter: 2010Q2

REPORT INFORMATION
  Report Type: 
  Country: None (occurrence: None)
  Receive Date: 20100618
  Receipt Date: 20100611
  Transmission Date: 20101027
  Serious: Yes (Hospitalization)
  Sender: FDA-Public Use
  Company Number: US-JNJFOC-20090609417

PATIENT
  Sex: Female

DRUGS (6)
  1. LEVAQUIN [Suspect]
     Indication: UPPER RESPIRATORY TRACT INFECTION
     Route: 065
  2. LEVAQUIN [Suspect]
     Route: 065
  3. LEVAQUIN [Suspect]
     Indication: BRONCHITIS
     Route: 065
  4. LEVAQUIN [Suspect]
     Route: 065
  5. LEVAQUIN [Suspect]
     Indication: SINUSITIS
     Route: 065
  6. LEVAQUIN [Suspect]
     Route: 065

REACTIONS (3)
  - SYNOVIAL RUPTURE [None]
  - TENDON PAIN [None]
  - TENDON RUPTURE [None]
